FAERS Safety Report 22802453 (Version 3)
Quarter: 2024Q1

REPORT INFORMATION
  Report Type: Report from Study
  Country: US (occurrence: US)
  Receive Date: 20230809
  Receipt Date: 20240117
  Transmission Date: 20240410
  Serious: Yes (Other)
  Sender: FDA-Public Use
  Company Number: US-ABBVIE-5359099

PATIENT
  Age: 74 Year
  Sex: Female
  Weight: 194 kg

DRUGS (2)
  1. SKYRIZI [Suspect]
     Active Substance: RISANKIZUMAB-RZAA
     Indication: Crohn^s disease
     Dosage: FORM STRENGTH: 2.4 MILLILITRE(S)
     Route: 058
     Dates: start: 20221102
  2. PEDIALYTE [Concomitant]
     Active Substance: POTASSIUM CITRATE\SODIUM CITRATE\ZINC
     Indication: Product used for unknown indication

REACTIONS (5)
  - Short-bowel syndrome [Not Recovered/Not Resolved]
  - Surgery [Unknown]
  - Frequent bowel movements [Recovering/Resolving]
  - Overweight [Unknown]
  - Mineral supplementation [Unknown]

NARRATIVE: CASE EVENT DATE: 20230701
